FAERS Safety Report 9387404 (Version 4)
Quarter: 2013Q3

REPORT INFORMATION
  Report Type: Spontaneous
  Country: US (occurrence: None)
  Receive Date: 20130702
  Receipt Date: 20130906
  Transmission Date: 20140515
  Serious: Yes (Hospitalization, Other)
  Sender: FDA-Public Use
  Company Number: ADR-2013-01095

PATIENT
  Age: 62 Year
  Sex: Female

DRUGS (1)
  1. LIORESAL INTRATHECAL (BACLOFEN INJECTION) [Suspect]
     Indication: MUSCLE SPASTICITY

REACTIONS (6)
  - Feeling abnormal [None]
  - Mobility decreased [None]
  - Drug ineffective [None]
  - Musculoskeletal stiffness [None]
  - Muscle tightness [None]
  - Constipation [None]
